FAERS Safety Report 6516944-0 (Version None)
Quarter: 2009Q4

REPORT INFORMATION
  Report Type: 
  Country: None (occurrence: None)
  Receive Date: 20091223
  Receipt Date: 20091211
  Transmission Date: 20100525
  Serious: Yes (Other)
  Sender: FDA-Public Use
  Company Number: JP-PFIZER INC-2009312545

PATIENT
  Sex: Female

DRUGS (3)
  1. SOLANAX [Suspect]
     Route: 048
  2. ZOLOFT [Suspect]
     Route: 048
  3. DOGMATYL [Suspect]
     Route: 048

REACTIONS (1)
  - ORTHOSTATIC HYPOTENSION [None]
